FAERS Safety Report 5648326-8 (Version None)
Quarter: 2008Q1

REPORT INFORMATION
  Report Type: 
  Country: None (occurrence: None)
  Receive Date: 20080229
  Receipt Date: 20080218
  Transmission Date: 20080703
  Serious: Yes (Life-Threatening)
  Sender: FDA-Public Use
  Company Number: 2008S1002691

PATIENT
  Age: 55 Year
  Sex: Female

DRUGS (9)
  1. SERTRALINE [Suspect]
     Indication: DEPRESSION
     Dosage: 100 MG; UNKNOWN; ORAL; UNKNOWN
     Route: 048
     Dates: start: 20070101, end: 20071127
  2. DICLOFENAC (DICLOFENAC) [Suspect]
     Indication: PAIN
     Dosage: 75 MG; ORAL
     Route: 048
     Dates: start: 20050131, end: 20080114
  3. ALISKIREN (ALISKIREN) [Suspect]
     Dosage: 150 MG; UNKNOWN; ORAL; UNKNOWN
     Route: 048
     Dates: start: 20071127, end: 20080114
  4. OMEPRAZOLE [Concomitant]
  5. ZOLPIDEM [Concomitant]
  6. ZOPICLONE (ZOPICLONE) [Concomitant]
  7. ATENOLOL [Concomitant]
  8. CO-CODAMOL (PANADEINE CO) [Concomitant]
  9. LISINOPRIL [Concomitant]

REACTIONS (2)
  - ANAEMIA [None]
  - DEPRESSION [None]
